FAERS Safety Report 4579813-1 (Version None)
Quarter: 2005Q1

REPORT INFORMATION
  Report Type: 
  Country: None (occurrence: None)
  Receive Date: 20050210
  Receipt Date: 20050125
  Transmission Date: 20050727
  Serious: Yes (Life-Threatening, Other)
  Sender: FDA-Public Use
  Company Number: 2005BL000752

PATIENT
  Age: 45 Year
  Sex: Female

DRUGS (2)
  1. OFLOXACIN [Suspect]
     Indication: CORNEAL EROSION
     Dosage: 1 DROP; 3 TIMES A DAY; LEFT EYE
     Dates: start: 20050107, end: 20050110
  2. OFLOXACIN [Suspect]
     Indication: CORNEAL EROSION
     Dosage: DAILY, LEFT EYE
     Dates: start: 20050107, end: 20050110

REACTIONS (7)
  - APPLICATION SITE IRRITATION [None]
  - APPLICATION SITE PAIN [None]
  - DIZZINESS [None]
  - DYSPNOEA [None]
  - FEELING ABNORMAL [None]
  - HYPERVENTILATION [None]
  - NAUSEA [None]
